FAERS Safety Report 9229007 (Version 2)
Quarter: 2013Q2

REPORT INFORMATION
  Report Type: Spontaneous
  Country: DE (occurrence: DE)
  Receive Date: 20130412
  Receipt Date: 20130424
  Transmission Date: 20140414
  Serious: Yes (Hospitalization)
  Sender: FDA-Public Use
  Company Number: DE-VERTEX PHARMACEUTICALS INC.-2013-004834

PATIENT
  Age: 43 Year
  Sex: Female

DRUGS (3)
  1. INCIVO [Suspect]
     Indication: CHRONIC HEPATITIS C
     Dosage: UNK
     Route: 065
  2. COPEGUS [Suspect]
     Indication: CHRONIC HEPATITIS C
     Dosage: DOSAGE FORM: UNSPECIFIED
     Route: 065
  3. PEGASYS [Suspect]
     Indication: CHRONIC HEPATITIS C
     Dosage: DOSAGE FORM: UNSPECIFIED
     Route: 058
     Dates: start: 20130208

REACTIONS (2)
  - Blister [Recovered/Resolved]
  - Rash [Recovered/Resolved]
